FAERS Safety Report 9790047 (Version 1)
Quarter: 2013Q4

REPORT INFORMATION
  Report Type: Spontaneous
  Country: US (occurrence: None)
  Receive Date: 20131230
  Receipt Date: 20131230
  Transmission Date: 20140711
  Serious: Yes (Other)
  Sender: FDA-Public Use
  Company Number: None

PATIENT
  Age: 38 Day
  Sex: Male
  Weight: 5.06 kg

DRUGS (1)
  1. HYOSYNE [Suspect]
     Indication: ABDOMINAL DISCOMFORT
     Route: 048
     Dates: start: 20131119, end: 20131211

REACTIONS (3)
  - Product label confusion [None]
  - Overdose [None]
  - Medication error [None]
